FAERS Safety Report 6950409-7 (Version None)
Quarter: 2010Q3

REPORT INFORMATION
  Report Type: 
  Country: None (occurrence: None)
  Receive Date: 20100828
  Receipt Date: 20100210
  Transmission Date: 20110219
  Serious: No
  Sender: FDA-Public Use
  Company Number: US-ABBOTT-10P-163-0626278-00

PATIENT
  Sex: Female
  Weight: 92.616 kg

DRUGS (14)
  1. NIASPAN [Suspect]
     Indication: BLOOD CHOLESTEROL INCREASED
     Dates: start: 20100201
  2. NIASPAN [Suspect]
     Indication: BLOOD TRIGLYCERIDES INCREASED
  3. NIASPAN [Suspect]
     Indication: HIGH DENSITY LIPOPROTEIN DECREASED
  4. VERAPAMIL [Concomitant]
     Indication: HYPERTENSION
  5. TRIAMTERENE [Concomitant]
     Indication: HYPERTENSION
  6. NEXIUM [Concomitant]
     Indication: HIATUS HERNIA
  7. ACTOPLUS MET [Concomitant]
     Indication: DIABETES MELLITUS
  8. PLAVIX [Concomitant]
     Indication: MYOCARDIAL INFARCTION
  9. PLAVIX [Concomitant]
     Indication: CORONARY ARTERY OCCLUSION
  10. PRAVASTATIN [Concomitant]
     Indication: CARDIAC DISORDER
  11. FLONASE [Concomitant]
     Indication: SINUS DISORDER
  12. LEXAPRO [Concomitant]
     Indication: ANXIETY
  13. ENTERIC ASPIRIN [Concomitant]
     Indication: CARDIAC DISORDER
  14. LISINOPRIL [Concomitant]
     Indication: HYPERTENSION

REACTIONS (2)
  - FLUSHING [None]
  - PRURITUS [None]
